FAERS Safety Report 9337613 (Version 1)
Quarter: 2013Q2

REPORT INFORMATION
  Report Type: Spontaneous
  Country: US (occurrence: US)
  Receive Date: 20130607
  Receipt Date: 20130607
  Transmission Date: 20140414
  Serious: No
  Sender: FDA-Public Use
  Company Number: US-ASTRAZENECA-2013SE40129

PATIENT
  Sex: Female

DRUGS (2)
  1. FASLODEX [Suspect]
     Indication: BREAST CANCER
     Dosage: 2-250MG Q2WK
     Route: 030
     Dates: start: 20130307, end: 20130529
  2. FASLODEX [Suspect]
     Indication: BREAST CANCER
     Dosage: 1-250MG Q2WK
     Route: 030
     Dates: start: 20130530

REACTIONS (1)
  - Hepatic cirrhosis [Not Recovered/Not Resolved]
